FAERS Safety Report 9539490 (Version 1)
Quarter: 2013Q3

REPORT INFORMATION
  Report Type: Spontaneous
  Country: DE (occurrence: None)
  Receive Date: 20130917
  Receipt Date: 20130917
  Transmission Date: 20140515
  Serious: Yes (Life-Threatening)
  Sender: FDA-Public Use
  Company Number: FK201304185

PATIENT
  Age: 56 Year
  Sex: Male
  Weight: 80 kg

DRUGS (5)
  1. VANCOMYCIN (MANUFACTURER UNKNOWN) (VANCOMYCIN) (VANCOMYCIN) [Suspect]
     Indication: SEPSIS
     Route: 042
  2. TAZOBAC (PIP / TAZO) [Concomitant]
  3. IMIPENEM (IMIPENEM) [Concomitant]
  4. DOXYCYCLINE (DOXYCYCLINE) [Concomitant]
  5. PANTOZOL (PANTOPRAZOLE SODIUM) [Concomitant]

REACTIONS (2)
  - Gastrointestinal haemorrhage [None]
  - Thrombocytopenia [None]
